FAERS Safety Report 16162389 (Version 1)
Quarter: 2019Q2

REPORT INFORMATION
  Report Type: Spontaneous
  Country: US (occurrence: US)
  Receive Date: 20190301
  Receipt Date: 20190301
  Transmission Date: 20190711
  Serious: Yes (Death, Hospitalization)
  Sender: FDA-Public Use
  Company Number: None

PATIENT
  Age: 61 Year
  Sex: Male

DRUGS (7)
  1. SMZ/TMP DS [Concomitant]
     Active Substance: SULFAMETHOXAZOLE\TRIMETHOPRIM
  2. ATORVASTATIN [Concomitant]
     Active Substance: ATORVASTATIN
  3. METOPROLOL TARTRATE. [Concomitant]
     Active Substance: METOPROLOL TARTRATE
  4. PROMACTA [Suspect]
     Active Substance: ELTROMBOPAG OLAMINE
     Indication: PULMONARY EMBOLISM
     Route: 048
     Dates: start: 20190222
  5. BUMETANIDE. [Concomitant]
     Active Substance: BUMETANIDE
  6. ELIQUIS [Concomitant]
     Active Substance: APIXABAN
  7. PANTAPRAZOLE [Concomitant]
     Active Substance: PANTOPRAZOLE SODIUM

REACTIONS (3)
  - Heart valve incompetence [None]
  - Cardiac failure congestive [None]
  - Pneumonia [None]

NARRATIVE: CASE EVENT DATE: 20190226
